FAERS Safety Report 4694052-1 (Version None)
Quarter: 2005Q2

REPORT INFORMATION
  Report Type: 
  Country: None (occurrence: None)
  Receive Date: 20050616
  Receipt Date: 20050603
  Transmission Date: 20051028
  Serious: Yes (Death, Other)
  Sender: FDA-Public Use
  Company Number: 2002106777US

PATIENT
  Age: 40 Year
  Sex: Female
  Weight: 69.99 kg

DRUGS (4)
  1. DEPO-PROVERA [Suspect]
     Indication: PELVIC PAIN
     Dosage: SEE IMAGE
     Route: 030
     Dates: start: 19911001, end: 19911001
  2. METHADONE (METHADONE) [Concomitant]
  3. ATENOL (ATENOLOL) [Concomitant]
  4. TYLENOL W/ CODEINE NO. 3 [Concomitant]

REACTIONS (11)
  - ABDOMINAL DISTENSION [None]
  - ALOPECIA [None]
  - BRUXISM [None]
  - DEAFNESS [None]
  - FOOT FRACTURE [None]
  - HIRSUTISM [None]
  - OSTEOPOROSIS [None]
  - PELVIC PAIN [None]
  - PREMATURE MENOPAUSE [None]
  - SWELLING [None]
  - WEIGHT INCREASED [None]
